FAERS Safety Report 23909829 (Version 2)
Quarter: 2024Q2

REPORT INFORMATION
  Report Type: Report from Study
  Country: US (occurrence: US)
  Receive Date: 20240528
  Receipt Date: 20240529
  Transmission Date: 20240716
  Serious: No
  Sender: FDA-Public Use
  Company Number: US-002147023-NVSC2024US111390

PATIENT
  Age: 19 Year
  Sex: Male
  Weight: 77.098 kg

DRUGS (6)
  1. ILARIS [Suspect]
     Active Substance: CANAKINUMAB
     Indication: Still^s disease
     Dosage: 300 MG (28D)
     Route: 058
     Dates: start: 20231016
  2. ILARIS [Suspect]
     Active Substance: CANAKINUMAB
     Dosage: 450 MG, EVERY 4 WEEKS
     Route: 058
     Dates: start: 20231016
  3. ILARIS [Suspect]
     Active Substance: CANAKINUMAB
     Dosage: 450 MG, 28D
     Route: 058
     Dates: start: 20240403
  4. ILARIS [Suspect]
     Active Substance: CANAKINUMAB
     Dosage: 450 MG, 28D
     Route: 058
     Dates: start: 20240429
  5. ILARIS [Suspect]
     Active Substance: CANAKINUMAB
     Dosage: 300 MG, 28D
     Route: 058
  6. RASUVO [Concomitant]
     Active Substance: METHOTREXATE SODIUM
     Indication: Product used for unknown indication
     Dosage: UNK (SELF-INJECTIONS)
     Route: 065

REACTIONS (2)
  - Pruritus [Recovered/Resolved]
  - Urticaria [Recovered/Resolved]

NARRATIVE: CASE EVENT DATE: 20240403
